FAERS Safety Report 7944019-2 (Version None)
Quarter: 2011Q4

REPORT INFORMATION
  Report Type: 
  Country: None (occurrence: None)
  Receive Date: 20111128
  Receipt Date: 20111121
  Transmission Date: 20120403
  Serious: Yes (Life-Threatening, Other)
  Sender: FDA-Public Use
  Company Number: US-ASTRAZENECA-2010SE33496

PATIENT
  Age: 47 Year
  Sex: Male
  Weight: 86.2 kg

DRUGS (2)
  1. MEDICATION FOR GLUCOSE REGULATION [Concomitant]
  2. NEXIUM [Suspect]
     Indication: GASTRITIS
     Route: 048

REACTIONS (8)
  - ABDOMINAL DISCOMFORT [None]
  - MALAISE [None]
  - HAEMATOCHEZIA [None]
  - INAPPROPRIATE SCHEDULE OF DRUG ADMINISTRATION [None]
  - ULCER HAEMORRHAGE [None]
  - CARDIAC ARREST [None]
  - NEPHROLITHIASIS [None]
  - ABDOMINAL PAIN UPPER [None]
